FAERS Safety Report 4315384-2 (Version None)
Quarter: 2004Q1

REPORT INFORMATION
  Report Type: 
  Country: None (occurrence: None)
  Receive Date: 20040309
  Receipt Date: 20040220
  Transmission Date: 20041129
  Serious: Yes (Other)
  Sender: FDA-Public Use
  Company Number: USA040260009

PATIENT
  Age: 83 Year
  Sex: Female

DRUGS (4)
  1. EVISTA [Suspect]
     Dates: start: 20040101
  2. CALCIUM AND VITAMIN D [Concomitant]
  3. DILTIAZEM [Concomitant]
  4. LEVOXYL [Concomitant]

REACTIONS (3)
  - OEDEMA PERIPHERAL [None]
  - POST PROCEDURAL COMPLICATION [None]
  - SPINAL FRACTURE [None]
